FAERS Safety Report 10210551 (Version 2)
Quarter: 2014Q2

REPORT INFORMATION
  Report Type: Spontaneous
  Country: US (occurrence: US)
  Receive Date: 20140602
  Receipt Date: 20140618
  Transmission Date: 20141212
  Serious: Yes (Death)
  Sender: FDA-Public Use
  Company Number: US-SA-2014SA067188

PATIENT
  Age: 60 Year
  Sex: Male

DRUGS (3)
  1. ENOXAPARIN SODIUM - WINTHROP [Suspect]
     Indication: LUNG CARCINOMA CELL TYPE UNSPECIFIED STAGE IV
     Dosage: DOSE: USED 80 ML SYRINGE
     Route: 065
     Dates: start: 2013
  2. ENOXAPARIN SODIUM - WINTHROP [Suspect]
     Indication: LUNG CARCINOMA CELL TYPE UNSPECIFIED STAGE IV
     Dosage: DOSE: USED 80 ML SYRINGE
     Route: 065
     Dates: start: 2013
  3. ENOXAPARIN SODIUM - WINTHROP [Suspect]
     Indication: LUNG CARCINOMA CELL TYPE UNSPECIFIED STAGE IV
     Dosage: DOSE: USED 100 ML SYRINGE
     Route: 065

REACTIONS (2)
  - Lung neoplasm malignant [Fatal]
  - Off label use [Unknown]
